FAERS Safety Report 5379600-0 (Version None)
Quarter: 2007Q3

REPORT INFORMATION
  Report Type: 
  Country: None (occurrence: None)
  Receive Date: 20070706
  Receipt Date: 20070702
  Transmission Date: 20080115
  Serious: Yes (Other)
  Sender: FDA-Public Use
  Company Number: DE-RB-007202-07

PATIENT
  Age: 80 Year
  Sex: Female

DRUGS (1)
  1. TEMGESIC [Suspect]
     Indication: DRUG USE FOR UNKNOWN INDICATION
     Dosage: DOSAGE UNKNOWN
     Route: 065
     Dates: start: 20050101

REACTIONS (1)
  - MENTAL IMPAIRMENT [None]
